FAERS Safety Report 5627994-0 (Version None)
Quarter: 2008Q1

REPORT INFORMATION
  Report Type: 
  Country: None (occurrence: None)
  Receive Date: 20080215
  Receipt Date: 20080205
  Transmission Date: 20080703
  Serious: Yes (Other)
  Sender: FDA-Public Use
  Company Number: US-AMGEN-QUU264047

PATIENT
  Sex: Female

DRUGS (1)
  1. ENBREL [Suspect]
     Indication: RHEUMATOID ARTHRITIS
     Dates: end: 20060101

REACTIONS (2)
  - HYPERGAMMAGLOBULINAEMIA BENIGN MONOCLONAL [None]
  - RHEUMATOID ARTHRITIS [None]
